FAERS Safety Report 17292103 (Version 1)
Quarter: 2020Q1

REPORT INFORMATION
  Report Type: Report from Study
  Country: CH (occurrence: CH)
  Receive Date: 20200121
  Receipt Date: 20200121
  Transmission Date: 20200409
  Serious: Yes (Other)
  Sender: FDA-Public Use
  Company Number: CH-BAYER-2019-220790

PATIENT
  Age: 46 Year
  Sex: Female

DRUGS (2)
  1. MIRENA [Suspect]
     Active Substance: LEVONORGESTREL
     Dosage: 20 MCG/24HR, CONT
     Route: 015
     Dates: start: 20191016
  2. MIRENA [Suspect]
     Active Substance: LEVONORGESTREL

REACTIONS (1)
  - Device dislocation [None]

NARRATIVE: CASE EVENT DATE: 2019
